FAERS Safety Report 19258634 (Version 3)
Quarter: 2021Q2

REPORT INFORMATION
  Report Type: Report from Study
  Country: CA (occurrence: CA)
  Receive Date: 20210514
  Receipt Date: 20210601
  Transmission Date: 20210717
  Serious: Yes (Hospitalization)
  Sender: FDA-Public Use
  Company Number: CA-ROCHE-2826095

PATIENT
  Age: 30 Year
  Sex: Male
  Weight: 131 kg

DRUGS (23)
  1. OCRELIZUMAB. [Suspect]
     Active Substance: OCRELIZUMAB
     Indication: RELAPSING-REMITTING MULTIPLE SCLEROSIS
     Dosage: BASELINE (WEEK 1)? INTRAVENOUS (IV) INFUSIONS ON DAYS 1 AND 15 FOR THE FIRST DOSE AND AS A SINGLE IN
     Route: 042
     Dates: start: 20120424, end: 20120424
  2. BENADRYL [Concomitant]
     Active Substance: DIPHENHYDRAMINE HYDROCHLORIDE
     Dosage: OLE WEEK 0.?NEXT DOSES RECEIVED ON 09/APR/2014 (WEEK 2), 16/SEP/2014 (WEEK 24), 02/MAR/2015 (WEEK 48
     Dates: start: 20140325
  3. METHYLPREDNISOLONE. [Concomitant]
     Active Substance: METHYLPREDNISOLONE
     Dosage: BASELINE (WEEK 1)?NEXT DOSE RECEIVED ON 08/MAY/2012 (WEEK 2), 18/OCT/2012 (WEEK 24), 28/MAR/2013 (WE
     Dates: start: 20120424
  4. BENADRYL [Concomitant]
     Active Substance: DIPHENHYDRAMINE HYDROCHLORIDE
     Dosage: BASELINE (WEEK 1)?NEXT DOSE RECEIVED ON 08/MAY/2012 (WEEK 2), 18/OCT/2012 (WEEK 24), 28/MAR/2013 (WE
     Dates: start: 20120424
  5. OCRELIZUMAB. [Suspect]
     Active Substance: OCRELIZUMAB
     Indication: RELAPSING-REMITTING MULTIPLE SCLEROSIS
     Dosage: OLE (WEEK 0), 260 ML? INTRAVENOUS (IV) INFUSIONS ON DAYS 1 AND 15 FOR THE FIRST DOSE AND AS A SINGLE
     Route: 042
     Dates: start: 20140325, end: 20140325
  6. REACTINE (CANADA) [Concomitant]
     Active Substance: CETIRIZINE HYDROCHLORIDE
     Dates: start: 20170515
  7. REACTINE (CANADA) [Concomitant]
     Active Substance: CETIRIZINE HYDROCHLORIDE
     Dates: start: 2007, end: 20160701
  8. OCRELIZUMAB. [Suspect]
     Active Substance: OCRELIZUMAB
     Dosage: WEEK 48
     Route: 042
     Dates: start: 20130328, end: 20130328
  9. OCRELIZUMAB. [Suspect]
     Active Substance: OCRELIZUMAB
     Dosage: OLE WEEK 24 (520 ML), NEXT INFUSIONS WERE RECEIVED ON 02/MAR/2015 (WEEK 48), 22/SEP/2015 (WEEK 72),
     Route: 042
     Dates: start: 20140916, end: 20140916
  10. MELATONIN [Concomitant]
     Active Substance: MELATONIN
     Dates: start: 20200824
  11. OCRELIZUMAB. [Suspect]
     Active Substance: OCRELIZUMAB
     Dosage: WEEK 24
     Route: 042
     Dates: start: 20121018, end: 20121018
  12. PLACEBO [Suspect]
     Active Substance: UNSPECIFIED INGREDIENT
     Indication: RELAPSING-REMITTING MULTIPLE SCLEROSIS
     Route: 058
     Dates: start: 20120424
  13. IBUPROFEN. [Concomitant]
     Active Substance: IBUPROFEN
     Dates: start: 20190801
  14. VALERIAN [Concomitant]
     Active Substance: VALERIAN
     Dates: start: 20201117
  15. TYLENOL [Concomitant]
     Active Substance: ACETAMINOPHEN
     Dosage: OLE WEEK 0.?NEXT DOSES RECEIVED ON 09/APR/2014 (WEEK 2), 16/SEP/2014 (WEEK 24), 02/MAR/2015 (WEEK 48
     Dates: start: 20140325
  16. OMEGA 3 [Concomitant]
     Active Substance: OMEGA-3 FATTY ACIDS
     Dates: start: 200809
  17. CLARITIN [Concomitant]
     Active Substance: LORATADINE
     Dates: start: 20190605
  18. CANNABIS [Concomitant]
     Active Substance: CANNABIS SATIVA SUBSP. INDICA TOP
     Dosage: 2 INHALATIONS
     Dates: start: 20180901
  19. OCRELIZUMAB. [Suspect]
     Active Substance: OCRELIZUMAB
     Dosage: WEEK 2
     Route: 042
     Dates: start: 20120508, end: 20120508
  20. OCRELIZUMAB. [Suspect]
     Active Substance: OCRELIZUMAB
     Dosage: WEEK 72
     Route: 042
     Dates: start: 20130912, end: 20130912
  21. PLACEBO [Suspect]
     Active Substance: UNSPECIFIED INGREDIENT
     Dosage: LAST DOSE PRIOR TO SAE WAS ON 25/MAR/2014
     Route: 058
     Dates: start: 20140225, end: 20140325
  22. TYLENOL [Concomitant]
     Active Substance: ACETAMINOPHEN
     Dosage: BASELINE (WEEK 1)?NEXT DOSE RECEIVED ON 08/MAY/2012 (WEEK 2), 18/OCT/2012 (WEEK 24), 28/MAR/2013 (WE
     Dates: start: 20120424
  23. METHYLPREDNISOLONE. [Concomitant]
     Active Substance: METHYLPREDNISOLONE
     Dosage: OLE WEEK 0.?NEXT DOSES RECEIVED ON 09/APR/2014 (WEEK 2), 16/SEP/2014 (WEEK 24), 02/MAR/2015 (WEEK 48
     Dates: start: 20140325

REACTIONS (2)
  - Pulmonary embolism [Not Recovered/Not Resolved]
  - COVID-19 [Not Recovered/Not Resolved]

NARRATIVE: CASE EVENT DATE: 20210417
